FAERS Safety Report 17841055 (Version 2)
Quarter: 2020Q3

REPORT INFORMATION
  Report Type: Spontaneous
  Country: US (occurrence: US)
  Receive Date: 20200529
  Receipt Date: 20200901
  Transmission Date: 20201103
  Serious: No
  Sender: FDA-Public Use
  Company Number: US-PFIZER INC-2020210453

PATIENT
  Age: 53 Year
  Sex: Female
  Weight: 108.86 kg

DRUGS (1)
  1. XELJANZ XR [Suspect]
     Active Substance: TOFACITINIB CITRATE
     Indication: RHEUMATOID ARTHRITIS
     Dosage: 11 MG, 1X/DAY
     Route: 048

REACTIONS (5)
  - Behaviour disorder [Unknown]
  - Therapeutic product effect incomplete [Unknown]
  - Emotional disorder [Unknown]
  - Weight increased [Unknown]
  - Liver disorder [Unknown]
